FAERS Safety Report 21492343 (Version 2)
Quarter: 2022Q4

REPORT INFORMATION
  Report Type: Spontaneous
  Country: JP (occurrence: JP)
  Receive Date: 20221021
  Receipt Date: 20221206
  Transmission Date: 20230113
  Serious: Yes (Hospitalization, Other)
  Sender: FDA-Public Use
  Company Number: JP-TEVA-2022-JP-2818360

PATIENT
  Age: 8 Decade
  Sex: Male

DRUGS (2)
  1. AZILECT [Suspect]
     Active Substance: RASAGILINE MESYLATE
     Indication: Therapeutic response shortened
     Dosage: .5 MILLIGRAM DAILY;
     Route: 048
  2. LEVODOPA [Concomitant]
     Active Substance: LEVODOPA
     Indication: Therapeutic response shortened
     Dosage: PREPARATION 500 MG
     Route: 065

REACTIONS (4)
  - Bradykinesia [Unknown]
  - Condition aggravated [Unknown]
  - Seizure [Unknown]
  - Dysuria [Unknown]
